FAERS Safety Report 20543638 (Version 2)
Quarter: 2022Q2

REPORT INFORMATION
  Report Type: Spontaneous
  Country: BE (occurrence: BE)
  Receive Date: 20220302
  Receipt Date: 20220521
  Transmission Date: 20220721
  Serious: Yes (Other)
  Sender: FDA-Public Use
  Company Number: BE-Basilea Pharmaceutica Deutschland GmbH-BE-BAS-21-00669

PATIENT
  Age: 57 Year
  Sex: Male

DRUGS (15)
  1. FLUCLOXACILLIN [Interacting]
     Active Substance: FLUCLOXACILLIN
     Indication: Staphylococcal infection
     Dosage: 2 GRAM (6X2G, HIGH DOSE)
     Route: 065
  2. FLUCLOXACILLIN [Interacting]
     Active Substance: FLUCLOXACILLIN
     Dosage: 12 GRAM
     Route: 065
  3. VORICONAZOLE [Suspect]
     Active Substance: VORICONAZOLE
     Indication: Bronchopulmonary aspergillosis
     Dosage: UNK,UNK, NO TREATMENT
     Route: 042
  4. VORICONAZOLE [Suspect]
     Active Substance: VORICONAZOLE
     Dosage: 6 MILLIGRAM/KILOGRAM(6 MG/KG, BID (LOADING DOSE FOR ONE DAY))
     Route: 042
  5. VORICONAZOLE [Suspect]
     Active Substance: VORICONAZOLE
     Dosage: 4 MILLIGRAM/KILOGRAM(4 MG/KG, BID (MAINTENANCE DOSE))
     Route: 042
  6. CRESEMBA [Interacting]
     Active Substance: ISAVUCONAZONIUM SULFATE
     Indication: Bronchopulmonary aspergillosis
     Dosage: 200 MILLIGRAM, ONCE A DAY
     Route: 042
     Dates: start: 20201203, end: 20201204
  7. CRESEMBA [Interacting]
     Active Substance: ISAVUCONAZONIUM SULFATE
     Dosage: 200 MILLIGRAM, ONCE A DAY
     Route: 042
     Dates: end: 20201218
  8. CRESEMBA [Interacting]
     Active Substance: ISAVUCONAZONIUM SULFATE
     Dosage: 200 MILLIGRAM, 18 HOURS
     Route: 042
     Dates: start: 20210122
  9. ISAVUCONAZOLE [Interacting]
     Active Substance: ISAVUCONAZOLE
     Indication: Lung disorder
     Dosage: UNK, EVERY 18 HOUR
     Route: 065
  10. ISAVUCONAZOLE [Interacting]
     Active Substance: ISAVUCONAZOLE
     Dosage: UNK, LOADING DOSE: NOT SPECIFIED FOR THE FIRST 2 DAYS
     Route: 065
  11. ISAVUCONAZONIUM SULFATE [Interacting]
     Active Substance: ISAVUCONAZONIUM SULFATE
     Indication: Bronchopulmonary aspergillosis
     Dosage: UNK, LOADING DOSE: NOT SPECIFIED ON THE INITIAL 2 DAYS
     Route: 065
  12. VFEND [Suspect]
     Active Substance: VORICONAZOLE
     Indication: Bronchopulmonary aspergillosis
     Dosage: UNK((ON DAY 26))
     Route: 042
  13. VFEND [Suspect]
     Active Substance: VORICONAZOLE
     Dosage: 12 MILLIGRAM/KILOGRAM, ONCE A DAY(6 MG/KG, BID (LOADING DOSE FOR ONE DAY))
     Route: 042
  14. VFEND [Suspect]
     Active Substance: VORICONAZOLE
     Dosage: 8 MILLIGRAM/KILOGRAM, ONCE A DAY(4 MG/KG, BID (MAINTENANCE DOSE))
     Route: 042
  15. LINEZOLID [Concomitant]
     Active Substance: LINEZOLID
     Indication: Staphylococcal sepsis
     Dosage: UNK (ON DAY 27)
     Route: 065

REACTIONS (6)
  - Renal impairment [Unknown]
  - Electrocardiogram QT prolonged [Unknown]
  - Drug interaction [Recovered/Resolved]
  - Drug ineffective [Unknown]
  - Drug level below therapeutic [Unknown]
  - Off label use [Unknown]
